FAERS Safety Report 5089033-2 (Version None)
Quarter: 2006Q3

REPORT INFORMATION
  Report Type: 
  Country: None (occurrence: None)
  Receive Date: 20060825
  Receipt Date: 20060522
  Transmission Date: 20061208
  Serious: Yes (Disabling)
  Sender: FDA-Public Use
  Company Number: 2006GB00903

PATIENT
  Age: 691 Month
  Sex: Female
  Weight: 53.6 kg

DRUGS (1)
  1. TAMOXIFEN CITRATE [Suspect]
     Route: 048
     Dates: start: 20031101, end: 20060601

REACTIONS (5)
  - AMNESIA [None]
  - DISTURBANCE IN ATTENTION [None]
  - FATIGUE [None]
  - IRRITABILITY [None]
  - SPEECH DISORDER [None]
